FAERS Safety Report 23830687 (Version 1)
Quarter: 2024Q2

REPORT INFORMATION
  Report Type: Spontaneous
  Country: CN (occurrence: None)
  Receive Date: 20240508
  Receipt Date: 20240508
  Transmission Date: 20240715
  Serious: Yes (Other)
  Sender: FDA-Public Use
  Company Number: 2024A105356

PATIENT
  Age: 22527 Day
  Sex: Male
  Weight: 65 kg

DRUGS (3)
  1. CRESTOR [Suspect]
     Active Substance: ROSUVASTATIN CALCIUM
     Indication: Type V hyperlipidaemia
     Route: 048
     Dates: start: 20240229, end: 20240424
  2. EZETIMIBE [Concomitant]
     Active Substance: EZETIMIBE
     Indication: Type V hyperlipidaemia
     Route: 048
     Dates: start: 20240229, end: 20240430
  3. ASPIRIN [Concomitant]
     Active Substance: ASPIRIN
     Indication: Type V hyperlipidaemia
     Route: 048
     Dates: start: 20240329, end: 20240430

REACTIONS (2)
  - Dyspepsia [Recovering/Resolving]
  - Hepatic function abnormal [Recovering/Resolving]

NARRATIVE: CASE EVENT DATE: 20240424
